FAERS Safety Report 21866394 (Version 3)
Quarter: 2023Q4

REPORT INFORMATION
  Report Type: Report from Study
  Country: CA (occurrence: CA)
  Receive Date: 20230116
  Receipt Date: 20231020
  Transmission Date: 20240110
  Serious: Yes (Other)
  Sender: FDA-Public Use
  Company Number: CA-BIOGEN-2023BI01181293

PATIENT
  Sex: Female

DRUGS (1)
  1. TECFIDERA [Suspect]
     Active Substance: DIMETHYL FUMARATE
     Indication: Relapsing-remitting multiple sclerosis
     Dosage: MAINTENANCE DOSE
     Route: 050
     Dates: start: 20150206

REACTIONS (8)
  - Gastrointestinal stromal tumour [Not Recovered/Not Resolved]
  - Monoplegia [Not Recovered/Not Resolved]
  - Visual impairment [Unknown]
  - Memory impairment [Not Recovered/Not Resolved]
  - Brain fog [Not Recovered/Not Resolved]
  - Animal attack [Not Recovered/Not Resolved]
  - Contusion [Not Recovered/Not Resolved]
  - Cognitive disorder [Not Recovered/Not Resolved]
